FAERS Safety Report 9535371 (Version 2)
Quarter: 2013Q3

REPORT INFORMATION
  Report Type: Spontaneous
  Country: US (occurrence: US)
  Receive Date: 20130918
  Receipt Date: 20130918
  Transmission Date: 20140515
  Serious: No
  Sender: FDA-Public Use
  Company Number: US-PURDUE-USA-2012-0090324

PATIENT
  Age: 53 Year
  Sex: Female

DRUGS (3)
  1. INTERMEZZO [Suspect]
     Indication: INSOMNIA
     Dosage: 1.75 MG, NOCTE
     Route: 060
     Dates: start: 20120716
  2. INTERMEZZO [Suspect]
     Dosage: 3.5 MG, UNK
     Route: 060
  3. AMBIEN [Suspect]
     Indication: INSOMNIA
     Dosage: UNK, HS

REACTIONS (2)
  - Incorrect dose administered [Unknown]
  - Drug ineffective [Unknown]
